FAERS Safety Report 13178455 (Version 2)
Quarter: 2017Q1

REPORT INFORMATION
  Report Type: Spontaneous
  Country: DE (occurrence: DE)
  Receive Date: 20170202
  Receipt Date: 20170206
  Transmission Date: 20170428
  Serious: Yes (Hospitalization, Other)
  Sender: FDA-Public Use
  Company Number: DE-UCBSA-2017003283

PATIENT
  Age: 92 Year
  Sex: Female

DRUGS (8)
  1. SAROTEN [Concomitant]
     Active Substance: AMITRIPTYLINE
     Indication: INSOMNIA
     Dosage: 50 MG, UNK
     Route: 048
     Dates: start: 20161226, end: 20170117
  2. PREGABALIN. [Concomitant]
     Active Substance: PREGABALIN
     Indication: MENTAL DISORDER
     Dosage: 50 MG, 2X/DAY (BID)
     Route: 048
     Dates: start: 20161223, end: 20170117
  3. XIPAMIDE [Concomitant]
     Active Substance: XIPAMIDE
     Indication: OEDEMA
     Dosage: 10 MG, ONCE DAILY (QD)
     Route: 048
     Dates: start: 20170109, end: 20170117
  4. KEPPRA [Suspect]
     Active Substance: LEVETIRACETAM
     Indication: EPILEPSY
     Dosage: 500 MG, 2X/DAY (BID)
     Route: 042
     Dates: start: 20170115, end: 20170117
  5. METAMIZOLE [Concomitant]
     Active Substance: METAMIZOLE
     Indication: PAIN
     Dosage: 20 GTT, 4X/DAY (QID)
     Route: 048
     Dates: start: 20170109, end: 20170116
  6. XIPAMIDE [Concomitant]
     Active Substance: XIPAMIDE
     Indication: GENERALISED OEDEMA
  7. TOREM [Concomitant]
     Active Substance: TORSEMIDE
     Indication: OEDEMA
     Dosage: 20 MG, ONCE DAILY (QD)
     Dates: start: 20170103, end: 20170106
  8. TOREM [Concomitant]
     Active Substance: TORSEMIDE
     Indication: GENERALISED OEDEMA

REACTIONS (2)
  - Leukopenia [Recovered/Resolved]
  - Thrombocytopenia [Recovered/Resolved]

NARRATIVE: CASE EVENT DATE: 20170115
